FAERS Safety Report 9250814 (Version 4)
Quarter: 2014Q1

REPORT INFORMATION
  Report Type: Spontaneous
  Country: US (occurrence: US)
  Receive Date: 20130424
  Receipt Date: 20140212
  Transmission Date: 20141002
  Serious: Yes (Hospitalization, Other)
  Sender: FDA-Public Use
  Company Number: US-ASTRAZENECA-2013SE27174

PATIENT
  Age: 80 Year
  Sex: Female
  Weight: 60.3 kg

DRUGS (22)
  1. NEXIUM [Suspect]
     Route: 048
     Dates: start: 200903, end: 201103
  2. NEXIUM [Suspect]
     Route: 048
     Dates: start: 20090917
  3. NEXIUM [Suspect]
     Route: 048
     Dates: start: 20101011
  4. ONDANSETRON [Concomitant]
     Dates: start: 20120624
  5. ZOFRAN [Concomitant]
     Dates: start: 20120624
  6. METFORMIN [Concomitant]
     Dates: start: 20120624
  7. SYNTHROID [Concomitant]
     Dates: start: 20120624
  8. LIVALO [Concomitant]
     Dates: start: 20120624
  9. AMLOD/BENAZP [Concomitant]
     Dosage: 5-10MG 2  A DAY
     Dates: start: 20120624
  10. PHENOBARB [Concomitant]
     Dates: start: 20120624
  11. PLAVIX [Concomitant]
     Dates: start: 20120624
  12. CITALOPRAM/CELEXA [Concomitant]
     Dates: start: 20120624
  13. CELEXA [Concomitant]
     Dates: start: 20120624
  14. ALENDRONATE SODIUM [Concomitant]
     Dates: start: 20120624
  15. TYLENOL [Concomitant]
     Dosage: 6 A DAY
     Dates: start: 20120624
  16. CHLORTHALID [Concomitant]
     Dates: start: 20120624
  17. MYLAN [Concomitant]
     Dates: start: 20120624
  18. METOCLOPRAM [Concomitant]
     Dates: start: 20120624
  19. CENTRUM SILVER [Concomitant]
     Dates: start: 20120624
  20. GINKO BILOBA [Concomitant]
     Dates: start: 20120624
  21. ASPIRIN [Concomitant]
     Dates: start: 20120624
  22. TUMS OTC [Concomitant]

REACTIONS (14)
  - Hip fracture [Unknown]
  - Osteoarthritis [Unknown]
  - Fall [Unknown]
  - Osteoporosis [Unknown]
  - Bone disorder [Unknown]
  - Tibia fracture [Unknown]
  - Arthritis [Unknown]
  - Abasia [Unknown]
  - Meniscus injury [Unknown]
  - Chondromalacia [Unknown]
  - Rheumatoid arthritis [Unknown]
  - Depression [Unknown]
  - Fibula fracture [Unknown]
  - Osteopenia [Unknown]
